FAERS Safety Report 20730838 (Version 2)
Quarter: 2022Q4

REPORT INFORMATION
  Report Type: Spontaneous
  Country: FR (occurrence: FR)
  Receive Date: 20220420
  Receipt Date: 20221213
  Transmission Date: 20230113
  Serious: Yes (Hospitalization, Other)
  Sender: FDA-Public Use
  Company Number: FR-GLAXOSMITHKLINE-FR2022EME065595

PATIENT

DRUGS (7)
  1. BELANTAMAB MAFODOTIN [Suspect]
     Active Substance: BELANTAMAB MAFODOTIN
     Indication: Plasma cell myeloma
     Dosage: 210 MG,EVERY 3 WEEKS
     Route: 042
     Dates: start: 20201222
  2. POMALIDOMIDE [Concomitant]
     Active Substance: POMALIDOMIDE
     Indication: Product used for unknown indication
     Dosage: UNK
     Dates: start: 202005, end: 202010
  3. POMALIDOMIDE [Concomitant]
     Active Substance: POMALIDOMIDE
     Dosage: UNK
     Dates: start: 20210119, end: 20210801
  4. ADRIAMYCIN [Concomitant]
     Active Substance: DOXORUBICIN HYDROCHLORIDE
     Indication: Product used for unknown indication
     Dosage: UNK
     Dates: start: 202005, end: 202010
  5. DEXAMETHASONE [Concomitant]
     Active Substance: DEXAMETHASONE
     Dosage: UNK
     Dates: start: 202005, end: 202010
  6. DEXAMETHASONE [Concomitant]
     Active Substance: DEXAMETHASONE
     Dosage: UNK
     Dates: start: 20210119, end: 20210801
  7. DARZALEX [Concomitant]
     Active Substance: DARATUMUMAB
     Indication: Product used for unknown indication
     Dosage: UNK
     Dates: start: 20210119, end: 20210801

REACTIONS (6)
  - Acute kidney injury [Recovered/Resolved]
  - Hypercalcaemia [Recovered/Resolved]
  - Hyperthermia [Recovered/Resolved]
  - Vomiting [Recovered/Resolved]
  - Asthenia [Recovering/Resolving]
  - Fatigue [Recovering/Resolving]

NARRATIVE: CASE EVENT DATE: 20201223
